FAERS Safety Report 4365838-8 (Version None)
Quarter: 2004Q2

REPORT INFORMATION
  Report Type: 
  Country: None (occurrence: None)
  Receive Date: 20040520
  Receipt Date: 20040506
  Transmission Date: 20050107
  Serious: Yes (Hospitalization)
  Sender: FDA-Public Use
  Company Number: 220001M04GBR

PATIENT
  Age: 13 Year
  Sex: Female

DRUGS (2)
  1. SAIZEN [Suspect]
     Indication: GROWTH HORMONE DEFICIENCY
     Dosage: 1.2 MG, 1 IN 1 DAYS, PER ORAL
     Route: 048
  2. LEVOTHYROXINE SODIUM [Concomitant]

REACTIONS (4)
  - BRAIN NEOPLASM [None]
  - MENINGIOMA [None]
  - POST PROCEDURAL COMPLICATION [None]
  - RADIATION INJURY [None]
